FAERS Safety Report 7206558-1 (Version None)
Quarter: 2011Q1

REPORT INFORMATION
  Report Type: 
  Country: None (occurrence: None)
  Receive Date: 20110103
  Receipt Date: 20101221
  Transmission Date: 20110831
  Serious: Yes (Other)
  Sender: FDA-Public Use
  Company Number: PHHY2010US68261

PATIENT
  Sex: Female
  Weight: 81 kg

DRUGS (1)
  1. FEMARA [Suspect]
     Indication: BREAST CANCER
     Dosage: 2.5 MG, DAILY
     Route: 048
     Dates: start: 20101007

REACTIONS (3)
  - HYPOAESTHESIA [None]
  - LYMPHADENECTOMY [None]
  - PAIN IN EXTREMITY [None]
